FAERS Safety Report 11168283 (Version 1)
Quarter: 2015Q2

REPORT INFORMATION
  Report Type: Spontaneous
  Country: US (occurrence: None)
  Receive Date: 20150604
  Receipt Date: 20150604
  Transmission Date: 20150821
  Serious: Yes (Disabling)
  Sender: FDA-Public Use
  Company Number: None

PATIENT
  Age: 29 Year
  Sex: Female
  Weight: 81.65 kg

DRUGS (1)
  1. MONTELUKAST [Suspect]
     Active Substance: MONTELUKAST SODIUM
     Indication: SEASONAL ALLERGY
     Dosage: 1
     Route: 048
     Dates: start: 20150518, end: 20150603

REACTIONS (5)
  - Crying [None]
  - Mood swings [None]
  - Panic attack [None]
  - Self-injurious ideation [None]
  - Suicidal ideation [None]
